FAERS Safety Report 10084285 (Version 3)
Quarter: 2014Q3

REPORT INFORMATION
  Report Type: Spontaneous
  Country: US (occurrence: US)
  Receive Date: 20140417
  Receipt Date: 20140822
  Transmission Date: 20150326
  Serious: Yes (Hospitalization)
  Sender: FDA-Public Use
  Company Number: US-BAYER-2014-054731

PATIENT
  Age: 21 Year
  Sex: Female
  Weight: 63.49 kg

DRUGS (11)
  1. TOPAMAX [Concomitant]
     Active Substance: TOPIRAMATE
     Indication: MIGRAINE
     Dosage: SLOW TITRATION, WEEK ONE 25 Q. H.S., (WEEK TWO 50 MG Q.H.S., WEEK THREE 25 MG IN A.M. AND 50 MG Q.H.
     Dates: start: 20110928
  2. YAZ [Suspect]
     Active Substance: DROSPIRENONE\ETHINYL ESTRADIOL
  3. GIANVI [Suspect]
     Active Substance: DROSPIRENONE\ETHINYL ESTRADIOL
  4. BENADRYL [Concomitant]
     Active Substance: DIPHENHYDRAMINE HYDROCHLORIDE
     Dosage: PRN
     Dates: start: 20110928
  5. ACETAMINOPHEN. [Concomitant]
     Active Substance: ACETAMINOPHEN
  6. BEYAZ [Suspect]
     Active Substance: DROSPIRENONE\ETHINYL ESTRADIOL\LEVOMEFOLATE CALCIUM
  7. IMITREX [Concomitant]
     Active Substance: SUMATRIPTAN\SUMATRIPTAN SUCCINATE
     Indication: HEADACHE
     Dosage: 50 MG, UNK
     Route: 048
     Dates: start: 20110928
  8. ADVIL [Concomitant]
     Active Substance: IBUPROFEN
     Dosage: 2-4 PILLS
     Dates: start: 20110928, end: 20111017
  9. ALEVE [Concomitant]
     Active Substance: NAPROXEN SODIUM
     Dosage: UNK
     Dates: start: 20110928
  10. EPIPEN [Concomitant]
     Active Substance: EPINEPHRINE
     Dosage: PRN
     Dates: start: 20110928
  11. ENOXAPARIN [Concomitant]
     Active Substance: ENOXAPARIN

REACTIONS (1)
  - Superior sagittal sinus thrombosis [Recovering/Resolving]

NARRATIVE: CASE EVENT DATE: 20111017
